FAERS Safety Report 20922821 (Version 2)
Quarter: 2022Q2

REPORT INFORMATION
  Report Type: Report from Study
  Country: US (occurrence: US)
  Receive Date: 20220607
  Receipt Date: 20220614
  Transmission Date: 20220721
  Serious: No
  Sender: FDA-Public Use
  Company Number: US-AMGEN-USASP2022097381

PATIENT
  Age: 88 Year
  Sex: Female
  Weight: 83.9 kg

DRUGS (48)
  1. EVENITY [Suspect]
     Active Substance: ROMOSOZUMAB-AQQG
     Indication: Spinal compression fracture
     Dosage: 210 MILLIGRAM, QMO
     Route: 058
     Dates: start: 20220206
  2. EVENITY [Suspect]
     Active Substance: ROMOSOZUMAB-AQQG
     Indication: Off label use
  3. CALCIUM [Concomitant]
     Active Substance: CALCIUM
     Dosage: UNK
  4. VITAMIN D [Concomitant]
     Active Substance: VITAMIN D NOS
     Dosage: 125 MICROGRAM
  5. ACIDOPHILUS [Concomitant]
     Active Substance: LACTOBACILLUS ACIDOPHILUS
  6. ALBUTEROL SULFATE [Concomitant]
     Active Substance: ALBUTEROL SULFATE
  7. SYSTANE (HYPROMELLOSE 2910 (4000 MPA.S)) [Concomitant]
     Active Substance: HYPROMELLOSE 2910 (4000 MPA.S)
  8. ARTIFICIAL TEAR [Concomitant]
     Active Substance: LANOLIN\MINERAL OIL\PETROLATUM
  9. VITAMIN C [Concomitant]
     Active Substance: ASCORBIC ACID
  10. ASPIRIN [Concomitant]
     Active Substance: ASPIRIN
  11. DIETARY SUPPLEMENT [Concomitant]
     Active Substance: DIETARY SUPPLEMENT
     Dosage: UNK UNK, BID
  12. TESSALON [Concomitant]
     Active Substance: BENZONATATE
  13. DIPROSONE [Concomitant]
     Active Substance: BETAMETHASONE DIPROPIONATE
  14. CALTRATE WITH VITAMIN D [Concomitant]
     Active Substance: CALCIUM CARBONATE\CHOLECALCIFEROL
  15. VITAMIN B12 [Concomitant]
     Active Substance: CYANOCOBALAMIN
  16. VOLTAREN [Concomitant]
     Active Substance: DICLOFENAC SODIUM
     Route: 061
  17. COLACE [Concomitant]
     Active Substance: DOCUSATE SODIUM
  18. CYMBALTA [Concomitant]
     Active Substance: DULOXETINE HYDROCHLORIDE
  19. FERROUS SULFATE [Concomitant]
     Active Substance: FERROUS SULFATE
  20. TRELEGY ELLIPTA [Concomitant]
     Active Substance: FLUTICASONE FUROATE\UMECLIDINIUM BROMIDE\VILANTEROL TRIFENATATE
  21. LASIX [Concomitant]
     Active Substance: FUROSEMIDE
  22. NORCO [Concomitant]
     Active Substance: ACETAMINOPHEN\HYDROCODONE BITARTRATE
  23. CULTURELLE [Concomitant]
     Active Substance: LACTOBACILLUS RHAMNOSUS
  24. COZAAR [Concomitant]
     Active Substance: LOSARTAN POTASSIUM
  25. MAGNESIUM OXIDE [Concomitant]
     Active Substance: MAGNESIUM OXIDE
  26. MOBIC [Concomitant]
     Active Substance: MELOXICAM
  27. MINERALS\VITAMINS [Concomitant]
     Active Substance: MINERALS\VITAMINS
  28. MYRBETRIQ [Concomitant]
     Active Substance: MIRABEGRON
  29. NAPROSYN [Concomitant]
     Active Substance: NAPROXEN
  30. PRILOSEC [Concomitant]
     Active Substance: OMEPRAZOLE MAGNESIUM
  31. XTAMPZA ER [Concomitant]
     Active Substance: OXYCODONE
  32. MIRAPEX [Concomitant]
     Active Substance: PRAMIPEXOLE DIHYDROCHLORIDE
  33. PRAVACHOL [Concomitant]
     Active Substance: PRAVASTATIN SODIUM
  34. SEROQUEL [Concomitant]
     Active Substance: QUETIAPINE FUMARATE
     Dosage: 25 MILLIGRAM
  35. SEROQUEL [Concomitant]
     Active Substance: QUETIAPINE FUMARATE
     Dosage: 50 MILLIGRAM
  36. REQUIP [Concomitant]
     Active Substance: ROPINIROLE HYDROCHLORIDE
  37. MURO 128 [Concomitant]
     Active Substance: SODIUM CHLORIDE
  38. TRAZODONE [Concomitant]
     Active Substance: TRAZODONE HYDROCHLORIDE
  39. Diphtheria and Tetanus vaccine adsorbed for adults and adolescents [Concomitant]
     Dosage: UNK
     Dates: start: 20130624
  40. Diphtheria and Tetanus vaccine adsorbed for adults and adolescents [Concomitant]
     Dosage: UNK
     Dates: start: 20191011
  41. Diphtheria and Tetanus vaccine adsorbed for adults and adolescents [Concomitant]
     Dosage: UNK
     Dates: start: 20181008
  42. Diphtheria and Tetanus vaccine adsorbed for adults and adolescents [Concomitant]
     Dosage: UNK
     Dates: start: 20201019
  43. INFLUENZA VIRUS VACCINE [Concomitant]
     Active Substance: INFLUENZA VIRUS VACCINE
     Dosage: UNK
     Dates: start: 20191019
  44. INFLUENZA VIRUS VACCINE [Concomitant]
     Active Substance: INFLUENZA VIRUS VACCINE
     Dosage: UNK
     Dates: start: 20110917
  45. INFLUENZA VIRUS VACCINE [Concomitant]
     Active Substance: INFLUENZA VIRUS VACCINE
     Dosage: UNK
     Dates: start: 20121015
  46. PREVNAR 13 [Concomitant]
     Active Substance: PNEUMOCOCCAL 13-VALENT CONJUGATE VACCINE
     Dosage: UNK
     Dates: start: 20170109
  47. PNEUMOVAX 23 [Concomitant]
     Active Substance: PNEUMOCOCCAL VACCINE, POLYVALENT 23
     Dosage: UNK
     Dates: start: 20110405
  48. TETANUS TOXOIDS [Concomitant]
     Active Substance: TETANUS TOXOIDS
     Dosage: UNK
     Dates: start: 20030811

REACTIONS (1)
  - Off label use [Unknown]

NARRATIVE: CASE EVENT DATE: 20220206
